FAERS Safety Report 5490114-X (Version None)
Quarter: 2007Q4

REPORT INFORMATION
  Report Type: 
  Country: None (occurrence: None)
  Receive Date: 20071018
  Receipt Date: 20071016
  Transmission Date: 20080405
  Serious: Yes (Hospitalization)
  Sender: FDA-Public Use
  Company Number: JP-BOEHRINGER INGELHEIM PHARMACEUTICALS, INC.-2007-BP-21668NB

PATIENT
  Sex: Male
  Weight: 55.9 kg

DRUGS (8)
  1. SPIRIVA [Suspect]
     Indication: EMPHYSEMA
     Route: 055
     Dates: start: 20070615, end: 20070622
  2. MUCOSTA [Concomitant]
     Indication: GASTRITIS
     Route: 048
  3. MUCOSOLVAN [Concomitant]
     Indication: BRONCHITIS CHRONIC
     Route: 048
  4. GANATON [Concomitant]
     Indication: GASTRITIS
     Route: 048
  5. LANSOPRAZOLE [Concomitant]
     Indication: REFLUX OESOPHAGITIS
     Route: 048
  6. NU-LOTAN [Concomitant]
     Indication: HYPERTENSION
     Route: 048
     Dates: start: 20051209, end: 20070628
  7. TERNELIN [Concomitant]
     Indication: TENSION HEADACHE
     Route: 048
     Dates: start: 20040315
  8. THEO-DUR [Concomitant]
     Indication: EMPHYSEMA
     Route: 048

REACTIONS (1)
  - PNEUMONIA [None]
